FAERS Safety Report 11454493 (Version 1)
Quarter: 2015Q3

REPORT INFORMATION
  Report Type: Spontaneous
  Country: US (occurrence: US)
  Receive Date: 20150831
  Receipt Date: 20150831
  Transmission Date: 20151125
  Serious: No
  Sender: FDA-Public Use
  Company Number: US-ELI_LILLY_AND_COMPANY-US201004002853

PATIENT
  Age: 86 Year
  Sex: Female

DRUGS (7)
  1. PATANOL [Concomitant]
     Active Substance: OLOPATADINE HYDROCHLORIDE
  2. LACTULOSE. [Concomitant]
     Active Substance: LACTULOSE
  3. PRILOSEC [Concomitant]
     Active Substance: OMEPRAZOLE MAGNESIUM
  4. TRAZODONE [Concomitant]
     Active Substance: TRAZODONE HYDROCHLORIDE
  5. CYMBALTA [Suspect]
     Active Substance: DULOXETINE HYDROCHLORIDE
     Dosage: 30 MG, 2/D
     Route: 048
     Dates: start: 200911
  6. LASIX [Concomitant]
     Active Substance: FUROSEMIDE
  7. NIFEDIPIN [Concomitant]
     Active Substance: NIFEDIPINE

REACTIONS (1)
  - Infection [Not Recovered/Not Resolved]
